FAERS Safety Report 10228361 (Version 1)
Quarter: 2014Q2

REPORT INFORMATION
  Report Type: Spontaneous
  Country: US (occurrence: None)
  Receive Date: 20140609
  Receipt Date: 20140609
  Transmission Date: 20141212
  Serious: No
  Sender: FDA-Public Use
  Company Number: None

PATIENT
  Age: 44 Year
  Sex: Female
  Weight: 140.62 kg

DRUGS (2)
  1. GLIMEPERIDE [Suspect]
     Indication: BLOOD GLUCOSE ABNORMAL
     Dosage: 1 PILL ONCE DAILY TAKEN BY MOUTH
     Route: 048
     Dates: start: 20140218, end: 20140317
  2. ONGLYZA [Suspect]
     Indication: BLOOD GLUCOSE ABNORMAL
     Dosage: 1 PILL ONCE DAILY TAKEN BY MOUTH
     Route: 048
     Dates: start: 20140317, end: 20140529

REACTIONS (5)
  - Headache [None]
  - Vision blurred [None]
  - Tremor [None]
  - Blepharospasm [None]
  - Product substitution issue [None]
